FAERS Safety Report 25945238 (Version 1)
Quarter: 2025Q4

REPORT INFORMATION
  Report Type: Spontaneous
  Country: US (occurrence: US)
  Receive Date: 20251021
  Receipt Date: 20251021
  Transmission Date: 20260117
  Serious: Yes (Other)
  Sender: MYLAN
  Company Number: US-MYLANLABS-2025M1088855

PATIENT
  Age: 64 Year

DRUGS (4)
  1. DILANTIN [Suspect]
     Active Substance: PHENYTOIN
     Indication: Product used for unknown indication
     Dosage: 400 MILLIGRAM, QD (DAILY)
  2. DILANTIN [Suspect]
     Active Substance: PHENYTOIN
     Dosage: 400 MILLIGRAM, QD (DAILY)
     Route: 065
  3. DILANTIN [Suspect]
     Active Substance: PHENYTOIN
     Dosage: 400 MILLIGRAM, QD (DAILY)
     Route: 065
  4. DILANTIN [Suspect]
     Active Substance: PHENYTOIN
     Dosage: 400 MILLIGRAM, QD (DAILY)

REACTIONS (1)
  - Seizure [Unknown]
